FAERS Safety Report 14096817 (Version 3)
Quarter: 2017Q4

REPORT INFORMATION
  Report Type: Spontaneous
  Country: US (occurrence: US)
  Receive Date: 20171017
  Receipt Date: 20171102
  Transmission Date: 20180321
  Serious: No
  Sender: FDA-Public Use
  Company Number: US-PFIZER INC-2017443162

PATIENT
  Age: 41 Year
  Sex: Female

DRUGS (6)
  1. SPIRONOLACTONE. [Suspect]
     Active Substance: SPIRONOLACTONE
     Indication: ACNE CYSTIC
     Dosage: 100 MG, UNK
     Route: 048
     Dates: start: 20151103
  2. VENTOLIN HFA [Concomitant]
     Active Substance: ALBUTEROL SULFATE
     Dosage: UNK
  3. MIRALAX [Concomitant]
     Active Substance: POLYETHYLENE GLYCOL 3350
     Indication: CONSTIPATION
     Dosage: UNK, (HALF A DOSE A DAY, MIXED WITH THE DRINK)
     Route: 048
  4. TAZORAC [Concomitant]
     Active Substance: TAZAROTENE
     Dosage: UNK
  5. SPIRONOLACTONE. [Suspect]
     Active Substance: SPIRONOLACTONE
     Dosage: 150 MG, DAILY (100 MG IN MORNING AND 50 MG AT NIGHT)
     Dates: end: 20170918
  6. REFISSA [Concomitant]
     Active Substance: TRETINOIN
     Dosage: UNK

REACTIONS (3)
  - Eye disorder [Recovering/Resolving]
  - Drug ineffective for unapproved indication [Recovering/Resolving]
  - Meibomian gland dysfunction [Recovering/Resolving]

NARRATIVE: CASE EVENT DATE: 20151103
